FAERS Safety Report 12156490 (Version 2)
Quarter: 2016Q1

REPORT INFORMATION
  Report Type: Report from Study
  Country: US (occurrence: US)
  Receive Date: 20160307
  Receipt Date: 20160315
  Transmission Date: 20160526
  Serious: Yes (Hospitalization, Other)
  Sender: FDA-Public Use
  Company Number: US-ALEXION PHARMACEUTICALS INC-A201601301

PATIENT
  Sex: Female

DRUGS (1)
  1. SOLIRIS [Suspect]
     Active Substance: ECULIZUMAB
     Indication: HAEMOLYTIC URAEMIC SYNDROME
     Route: 042

REACTIONS (5)
  - Clostridium difficile colitis [Unknown]
  - Hospitalisation [Unknown]
  - Thrombosis [Recovering/Resolving]
  - Seizure [Unknown]
  - Confusional state [Unknown]

NARRATIVE: CASE EVENT DATE: 20160219
